FAERS Safety Report 5230491-8 (Version None)
Quarter: 2007Q1

REPORT INFORMATION
  Report Type: 
  Country: None (occurrence: None)
  Receive Date: 20070206
  Receipt Date: 20070125
  Transmission Date: 20070707
  Serious: Yes (Hospitalization)
  Sender: FDA-Public Use
  Company Number: PHBS2003CH13171

PATIENT
  Age: 41 Year
  Sex: Male

DRUGS (10)
  1. TEGRETOL [Suspect]
     Indication: AGGRESSION
     Dosage: 200 MG/DAY
     Route: 065
     Dates: start: 20030804, end: 20030818
  2. TEGRETOL [Suspect]
     Dosage: 800 MG/DAY
     Route: 048
     Dates: start: 20030816, end: 20030816
  3. SEROPRAM [Suspect]
     Indication: AGGRESSION
     Dosage: 20 MG/DAY
     Route: 048
     Dates: start: 20030804, end: 20030818
  4. LITHIUM CARBONATE [Suspect]
     Indication: AGGRESSION
     Dosage: 660 MG/DAY
     Route: 048
     Dates: start: 20030804, end: 20030813
  5. LITHIUM CARBONATE [Suspect]
     Dosage: 1320 MG/DAY
     Route: 048
     Dates: start: 20030814, end: 20030819
  6. CLOPIXOL [Suspect]
     Dosage: 60 MG/DAY
     Route: 048
  7. TEMESTA [Suspect]
     Dosage: 7.5 MG/DAY
     Route: 065
  8. AKINETON [Suspect]
     Dosage: 4 MG/DAY
     Route: 048
  9. FERRUM HAUSMANN [Concomitant]
     Dosage: 304 MG/DAY
     Route: 065
  10. PANTOZOL [Suspect]
     Dosage: 40 MG/DAY
     Route: 048

REACTIONS (10)
  - BLOOD ALKALINE PHOSPHATASE DECREASED [None]
  - CONFUSIONAL STATE [None]
  - COORDINATION ABNORMAL [None]
  - DISORIENTATION [None]
  - GAMMA-GLUTAMYLTRANSFERASE INCREASED [None]
  - HAEMATOCRIT DECREASED [None]
  - HAEMOGLOBIN DECREASED [None]
  - SEDATION [None]
  - TREMOR [None]
  - URINARY INCONTINENCE [None]
